FAERS Safety Report 7592565-6 (Version None)
Quarter: 2011Q3

REPORT INFORMATION
  Report Type: 
  Country: None (occurrence: None)
  Receive Date: 20110706
  Receipt Date: 20110629
  Transmission Date: 20111222
  Serious: Yes (Other)
  Sender: FDA-Public Use
  Company Number: BR-PFIZER INC-2011146125

PATIENT
  Sex: Female

DRUGS (1)
  1. LEVONORGESTREL AND ETHINYL ESTRADIOL [Suspect]
     Indication: CONTRACEPTION
     Dosage: 1 DF, 1X/DAY
     Route: 048

REACTIONS (5)
  - HYPOTENSION [None]
  - UNINTENDED PREGNANCY [None]
  - DIZZINESS [None]
  - NAUSEA [None]
  - DRUG INEFFECTIVE [None]
